FAERS Safety Report 21361974 (Version 1)
Quarter: 2022Q3

REPORT INFORMATION
  Report Type: Report from Study
  Country: US (occurrence: US)
  Receive Date: 20220922
  Receipt Date: 20220922
  Transmission Date: 20221027
  Serious: Yes (Other)
  Sender: FDA-Public Use
  Company Number: US-BRISTOL-MYERS SQUIBB COMPANY-2022-030172

PATIENT
  Age: 61 Year
  Sex: Male
  Weight: 56.24 kg

DRUGS (7)
  1. REVLIMID [Suspect]
     Active Substance: LENALIDOMIDE
     Indication: Plasma cell myeloma
     Dosage: DAILY FOR 7 DAYS ON THEN 7 DAYS OFF.EXP.DATE:30-SEP-2024
     Route: 048
     Dates: start: 2014
  2. REVLIMID [Suspect]
     Active Substance: LENALIDOMIDE
  3. GABAPENTIN [Concomitant]
     Active Substance: GABAPENTIN
     Indication: Product used for unknown indication
     Route: 065
  4. MORPHINE SULFATE [Concomitant]
     Active Substance: MORPHINE SULFATE
     Indication: Product used for unknown indication
     Route: 065
  5. ACETAMINOPHEN\HYDROCODONE [Concomitant]
     Active Substance: ACETAMINOPHEN\HYDROCODONE
     Indication: Product used for unknown indication
     Route: 065
  6. ASPIRIN [Concomitant]
     Active Substance: ASPIRIN
     Indication: Product used for unknown indication
     Route: 065
  7. AMITRIPTYLINE [Concomitant]
     Active Substance: AMITRIPTYLINE
     Indication: Product used for unknown indication
     Route: 065

REACTIONS (6)
  - Rhinorrhoea [Recovered/Resolved]
  - Periorbital swelling [Recovered/Resolved]
  - Dyspnoea [Recovered/Resolved]
  - Neuropathy peripheral [Unknown]
  - Pneumonia [Unknown]
  - Off label use [Unknown]
